FAERS Safety Report 24914804 (Version 1)
Quarter: 2025Q1

REPORT INFORMATION
  Report Type: Report from Study
  Country: US (occurrence: US)
  Receive Date: 20250203
  Receipt Date: 20250203
  Transmission Date: 20250408
  Serious: Yes (Other)
  Sender: ABBVIE
  Company Number: US-ABBVIE-6111696

PATIENT
  Age: 76 Year
  Sex: Female

DRUGS (1)
  1. UBRELVY [Suspect]
     Active Substance: UBROGEPANT
     Indication: Product used for unknown indication
     Route: 048
     Dates: start: 20240215

REACTIONS (2)
  - Neck surgery [Not Recovered/Not Resolved]
  - Headache [Not Recovered/Not Resolved]

NARRATIVE: CASE EVENT DATE: 20240501
